FAERS Safety Report 8037529-3 (Version None)
Quarter: 2012Q1

REPORT INFORMATION
  Report Type: 
  Country: None (occurrence: None)
  Receive Date: 20120111
  Receipt Date: 20120104
  Transmission Date: 20120608
  Serious: Yes (Hospitalization, Other)
  Sender: FDA-Public Use
  Company Number: US-BAYER-2010-006131

PATIENT
  Age: 30 Year
  Sex: Female
  Weight: 100 kg

DRUGS (15)
  1. ALBUTEROL [Concomitant]
     Dosage: UNK
     Dates: start: 19920101
  2. ASCORBIC ACID [Concomitant]
  3. SINGULAIR [Concomitant]
     Dosage: 10 MG, QD
     Route: 048
  4. SPORANOX [Concomitant]
     Indication: SINUSITIS
     Dosage: '100 MG, QD
     Route: 048
  5. MYCOSTATIN [Concomitant]
     Indication: RASH
     Dosage: UNK UNK, BID
     Route: 061
  6. NEXIUM [Concomitant]
     Dosage: 40 MG, QD
     Route: 048
  7. ZYRTEC [Concomitant]
     Dosage: UNK
     Dates: start: 19960101
  8. YASMIN [Suspect]
     Indication: MENSTRUATION IRREGULAR
  9. PREDNISONE [Concomitant]
     Dosage: UNK
     Dates: start: 19920101
  10. LISINOPRIL [Concomitant]
     Dosage: UNK
     Dates: start: 20070101
  11. CEFTIN [Concomitant]
     Indication: ANTIBIOTIC THERAPY
     Dosage: 200 MG, BID
  12. METFORMIN HCL [Concomitant]
     Indication: BLOOD GLUCOSE ABNORMAL
     Dosage: 500 MG, QD
  13. YASMIN [Suspect]
     Indication: CONTRACEPTION
     Dosage: UNK
     Dates: start: 20060101, end: 20070101
  14. ADVAIR DISKUS 100/50 [Concomitant]
     Dosage: UNK UNK, BID
  15. PERCOCET [Concomitant]
     Indication: PAIN
     Dosage: UNK UNK, PRN
     Route: 048

REACTIONS (7)
  - CEREBRAL VENOUS THROMBOSIS [None]
  - PAIN [None]
  - MUSCULAR WEAKNESS [None]
  - CEREBROVASCULAR ACCIDENT [None]
  - HEADACHE [None]
  - CONFUSIONAL STATE [None]
  - AMNESIA [None]
